FAERS Safety Report 6187925-4 (Version None)
Quarter: 2009Q2

REPORT INFORMATION
  Report Type: 
  Country: None (occurrence: None)
  Receive Date: 20090511
  Receipt Date: 20090429
  Transmission Date: 20091009
  Serious: Yes (Life-Threatening, Hospitalization, Other)
  Sender: FDA-Public Use
  Company Number: 2009AL002841

PATIENT
  Age: 55 Year
  Sex: Male

DRUGS (1)
  1. DICLOFENAC SODIUM [Suspect]
     Indication: MUSCULOSKELETAL PAIN
     Dosage: 50 MG; TID; PO
     Route: 048
     Dates: start: 20090327

REACTIONS (4)
  - DUODENITIS [None]
  - GASTRIC ULCER [None]
  - HAEMOGLOBIN DECREASED [None]
  - MELAENA [None]
